FAERS Safety Report 6504353-X (Version None)
Quarter: 2009Q4

REPORT INFORMATION
  Report Type: 
  Country: None (occurrence: None)
  Receive Date: 20091217
  Receipt Date: 20091214
  Transmission Date: 20100525
  Serious: Yes (Other)
  Sender: FDA-Public Use
  Company Number: AU-ELI_LILLY_AND_COMPANY-AU200910007648

PATIENT
  Sex: Male

DRUGS (5)
  1. HUMALOG [Suspect]
     Indication: TYPE 1 DIABETES MELLITUS
     Dosage: 8 U, OTHER
     Route: 058
  2. HUMALOG [Suspect]
     Dosage: 14 U, EACH EVENING
     Route: 058
  3. HUMALOG [Suspect]
     Dosage: 10 U, EACH MORNING
     Route: 058
  4. LANTUS [Concomitant]
     Indication: TYPE 1 DIABETES MELLITUS
     Dosage: 11 U, EACH MORNING
     Dates: start: 20090101
  5. LANTUS [Concomitant]
     Dosage: 16 U, EACH EVENING

REACTIONS (1)
  - HYPOGLYCAEMIC COMA [None]
